FAERS Safety Report 13735271 (Version 1)
Quarter: 2017Q3

REPORT INFORMATION
  Report Type: Spontaneous
  Country: US (occurrence: US)
  Receive Date: 20170707
  Receipt Date: 20170707
  Transmission Date: 20171127
  Serious: Yes (Other)
  Sender: FDA-Public Use
  Company Number: None

PATIENT
  Age: 59 Year
  Sex: Female
  Weight: 78.75 kg

DRUGS (20)
  1. ORENCIA [Suspect]
     Active Substance: ABATACEPT
     Indication: RHEUMATOID ARTHRITIS
     Dosage: ?          OTHER DOSE:MG;OTHER FREQUENCY:EVERY WEEK;?
     Route: 058
     Dates: start: 20170324, end: 20170623
  2. AZELASTINE [Concomitant]
     Active Substance: AZELASTINE
  3. CLARITIN [Concomitant]
     Active Substance: LORATADINE
  4. TRIAMTERENE-HCTZ [Concomitant]
     Active Substance: HYDROCHLOROTHIAZIDE\TRIAMTERENE
  5. LIOTHYRONINE [Concomitant]
     Active Substance: LIOTHYRONINE
  6. CO-Q 10 [Concomitant]
     Active Substance: UBIDECARENONE
  7. LEVOTHYROXINE. [Concomitant]
     Active Substance: LEVOTHYROXINE
  8. OMEGA 3 [Concomitant]
     Active Substance: OMEGA-3 FATTY ACIDS
  9. LEFLUNOMIDE. [Concomitant]
     Active Substance: LEFLUNOMIDE
  10. OMEPRAZOLE. [Concomitant]
     Active Substance: OMEPRAZOLE
  11. PILOCARPINE. [Concomitant]
     Active Substance: PILOCARPINE
  12. VITAMIN D [Concomitant]
     Active Substance: CHOLECALCIFEROL
  13. BENADRYL [Concomitant]
     Active Substance: DIPHENHYDRAMINE HYDROCHLORIDE
  14. BUPROPION. [Concomitant]
     Active Substance: BUPROPION
  15. DHEA [Concomitant]
     Active Substance: PRASTERONE
  16. MELOXICAM. [Concomitant]
     Active Substance: MELOXICAM
  17. SIMVASTATIN. [Concomitant]
     Active Substance: SIMVASTATIN
  18. ASPIRIN. [Concomitant]
     Active Substance: ASPIRIN
  19. HYDROXYZINE [Concomitant]
     Active Substance: HYDROXYZINE HYDROCHLORIDE
  20. RESTASIS [Concomitant]
     Active Substance: CYCLOSPORINE

REACTIONS (2)
  - Skin exfoliation [None]
  - Rash [None]

NARRATIVE: CASE EVENT DATE: 20170619
